FAERS Safety Report 9415489 (Version 14)
Quarter: 2014Q3

REPORT INFORMATION
  Report Type: Spontaneous
  Country: US (occurrence: US)
  Receive Date: 20130723
  Receipt Date: 20140815
  Transmission Date: 20150326
  Serious: No
  Sender: FDA-Public Use
  Company Number: US-PFIZER INC-2013212296

PATIENT
  Age: 63 Year
  Sex: Female
  Weight: 48.98 kg

DRUGS (15)
  1. SUTENT [Suspect]
     Active Substance: SUNITINIB MALATE
     Dosage: UNK
  2. SUTENT [Suspect]
     Active Substance: SUNITINIB MALATE
     Indication: METASTATIC NEOPLASM
     Dosage: 12.5 MG DAILY, 28 DAYS ON 14 DAYS OFF
     Route: 048
     Dates: start: 20130717, end: 20130801
  3. XANAX [Concomitant]
     Active Substance: ALPRAZOLAM
     Indication: ANXIETY
     Dosage: UNK
  4. MAGIC MOUTHWASH [Concomitant]
     Active Substance: DIPHENHYDRAMINE HYDROCHLORIDE\LIDOCAINE HYDROCHLORIDE\NYSTATIN
     Dosage: UNK
  5. CLARITIN [Concomitant]
     Active Substance: LORATADINE
     Dosage: UNK
  6. TYLENOL [Concomitant]
     Active Substance: ACETAMINOPHEN
     Dosage: UNK
  7. LEVOTHYROXINE [Concomitant]
     Active Substance: LEVOTHYROXINE
     Dosage: 25 MCG, UNK
  8. SUTENT [Suspect]
     Active Substance: SUNITINIB MALATE
     Dosage: 25 MG, DAILY, 2 WEEKS ON AND 1 WEEK OFF
  9. XANAX [Concomitant]
     Active Substance: ALPRAZOLAM
     Indication: PANIC ATTACK
  10. LEVOTHYROXINE [Concomitant]
     Active Substance: LEVOTHYROXINE
     Dosage: 50 MCG, UNK
     Dates: start: 20131104
  11. SUTENT [Suspect]
     Active Substance: SUNITINIB MALATE
     Dosage: 25 MG DAILY, 28 DAYS ON AND 14 DAYS OFF
     Route: 048
     Dates: start: 20130802, end: 20131030
  12. METOPROLOL [Concomitant]
     Active Substance: METOPROLOL
     Dosage: UNK
  13. SUTENT [Suspect]
     Active Substance: SUNITINIB MALATE
     Dosage: 25 MG, 2 WEEKS ON AND 1 WEEK OFF
     Dates: start: 20140515
  14. MUCINEX [Concomitant]
     Active Substance: GUAIFENESIN
     Dosage: UNK
  15. SUTENT [Suspect]
     Active Substance: SUNITINIB MALATE
     Dosage: 25 MG, DAILY
     Route: 048
     Dates: start: 20131114, end: 20131127

REACTIONS (49)
  - Muscular weakness [Unknown]
  - Constipation [Unknown]
  - Pain of skin [Unknown]
  - Dyspepsia [Unknown]
  - Gastrooesophageal reflux disease [Unknown]
  - Blood bilirubin increased [Recovering/Resolving]
  - Alopecia totalis [Not Recovered/Not Resolved]
  - Vision blurred [Unknown]
  - Dry skin [Unknown]
  - Diarrhoea [Unknown]
  - Abdominal distension [Unknown]
  - Cholelithiasis [Unknown]
  - Faeces discoloured [Recovering/Resolving]
  - Nausea [Unknown]
  - Abdominal pain upper [Unknown]
  - Dry mouth [Unknown]
  - Swelling face [Not Recovered/Not Resolved]
  - White blood cell count increased [Unknown]
  - Dysgeusia [Not Recovered/Not Resolved]
  - Paraesthesia [Unknown]
  - Vitreous floaters [Unknown]
  - Glossodynia [Not Recovered/Not Resolved]
  - Erythema [Unknown]
  - White blood cell count decreased [Unknown]
  - Chills [Unknown]
  - Dacryostenosis acquired [Unknown]
  - Ear congestion [Unknown]
  - Blister [Unknown]
  - Acne [Unknown]
  - Jaundice [Recovered/Resolved]
  - Pyrexia [Unknown]
  - Vomiting [Recovered/Resolved]
  - Oral pain [Unknown]
  - Oral disorder [Unknown]
  - Tremor [Unknown]
  - Groin pain [Unknown]
  - Blood pressure increased [Unknown]
  - Platelet count decreased [Not Recovered/Not Resolved]
  - Contusion [Unknown]
  - Fatigue [Not Recovered/Not Resolved]
  - Influenza like illness [Unknown]
  - Blood thyroid stimulating hormone increased [Unknown]
  - Decreased appetite [Unknown]
  - Tinnitus [Unknown]
  - Hair colour changes [Unknown]
  - Flatulence [Unknown]
  - Palmar-plantar erythrodysaesthesia syndrome [Not Recovered/Not Resolved]
  - Skin fissures [Unknown]
  - Headache [Unknown]

NARRATIVE: CASE EVENT DATE: 2013
